FAERS Safety Report 8508992-6 (Version None)
Quarter: 2012Q3

REPORT INFORMATION
  Report Type: 
  Country: None (occurrence: None)
  Receive Date: 20120703
  Receipt Date: 20110602
  Transmission Date: 20120928
  Serious: Yes (Hospitalization, Other)
  Sender: FDA-Public Use
  Company Number: GB-021547

PATIENT
  Age: 66 Year
  Sex: Male

DRUGS (2)
  1. CHLORAMBUCIL (CHLORAMBUCIL) [Suspect]
     Indication: CHRONIC LYMPHOCYTIC LEUKAEMIA
     Dosage: 10MGM2 DAYS 1-7 EVERY 28 DAYS
     Route: 048
     Dates: start: 20101104
  2. OFATUMUMAB (OFATUMUMAB) (INJECTION) [Suspect]
     Indication: CHRONIC LYMPHOCYTIC LEUKAEMIA
     Dosage: 300MG AT DAY1, 1000MG AT DAY 8, 1000MG EVERY 28 DAYS
     Route: 042
     Dates: start: 20101104

REACTIONS (2)
  - PULMONARY OEDEMA [None]
  - ELECTROCARDIOGRAM CHANGE [None]
